FAERS Safety Report 20154941 (Version 3)
Quarter: 2022Q1

REPORT INFORMATION
  Report Type: Spontaneous
  Country: BR (occurrence: BR)
  Receive Date: 20211207
  Receipt Date: 20220127
  Transmission Date: 20220423
  Serious: Yes (Other)
  Sender: FDA-Public Use
  Company Number: BR-ORGANON-O2112BRA000367

PATIENT
  Age: 20 Year
  Sex: Female
  Weight: 70 kg

DRUGS (3)
  1. ETONOGESTREL [Suspect]
     Active Substance: ETONOGESTREL
     Indication: Contraception
     Dosage: 1 IMPLANT, INNER SIDE OF LEFT ARM
     Route: 059
     Dates: start: 20190731, end: 20211104
  2. FOLIC ACID [Concomitant]
     Active Substance: FOLIC ACID
     Indication: Prenatal care
     Dosage: STRENGTH: 0.2MG/ML, (TAKE 40 DROPS ORALLY A DAY)
     Route: 048
     Dates: start: 20211104
  3. FERROUS SULFATE [Concomitant]
     Active Substance: FERROUS SULFATE
     Indication: Prenatal care
     Dosage: MINIMUM 40MG OF ELEMENTARY IRON (1 TABLET DAILY)
     Route: 048
     Dates: start: 20211104

REACTIONS (3)
  - Pregnancy with implant contraceptive [Not Recovered/Not Resolved]
  - Swelling [Unknown]
  - Unintended pregnancy [Not Recovered/Not Resolved]

NARRATIVE: CASE EVENT DATE: 20210619
